FAERS Safety Report 7902663-2 (Version None)
Quarter: 2011Q4

REPORT INFORMATION
  Report Type: 
  Country: None (occurrence: None)
  Receive Date: 20111108
  Receipt Date: 20111108
  Transmission Date: 20120403
  Serious: Yes (Hospitalization)
  Sender: FDA-Public Use
  Company Number: IT-GILEAD-2011-0045621

PATIENT
  Sex: Female

DRUGS (12)
  1. TRUVADA [Suspect]
     Indication: HIV INFECTION
     Dosage: 1 DF, UNK
     Route: 048
     Dates: start: 20040101, end: 20110525
  2. DURONITRIN [Concomitant]
  3. LASIX [Concomitant]
  4. NORVIR [Suspect]
     Indication: HIV INFECTION
     Dosage: 1 DF, UNK
     Route: 048
     Dates: start: 20040101, end: 20110525
  5. PLAVIX [Suspect]
     Indication: CORONARY ARTERY BYPASS
     Dosage: 1 DF, UNK
     Route: 048
     Dates: start: 20080101, end: 20110525
  6. LUCEN [Concomitant]
  7. REYATAZ [Suspect]
     Indication: HIV INFECTION
     Dosage: 1 DF, UNK
     Route: 048
     Dates: start: 20040101, end: 20110525
  8. LEUCOVORIN CALCIUM [Concomitant]
  9. ATORVASTATIN CALCIUM [Concomitant]
  10. BISOPROLOL FUMARATE [Concomitant]
     Indication: HYPERTENSION
  11. METFFORMIN HYDROCHLORIDE [Concomitant]
     Dosage: 2 G, UNK
     Route: 048
  12. ASPIRIN [Suspect]
     Indication: CORONARY ARTERY BYPASS
     Dosage: 1 DF, UNK
     Route: 048
     Dates: start: 20080101, end: 20110525

REACTIONS (2)
  - ANAEMIA [None]
  - MELAENA [None]
